FAERS Safety Report 8223390-0 (Version None)
Quarter: 2012Q1

REPORT INFORMATION
  Report Type: 
  Country: None (occurrence: None)
  Receive Date: 20120321
  Receipt Date: 20120316
  Transmission Date: 20120608
  Serious: Yes (Hospitalization)
  Sender: FDA-Public Use
  Company Number: US-BAYER-2011-050092

PATIENT
  Age: 24 Year
  Sex: Female
  Weight: 55 kg

DRUGS (2)
  1. IRON [Concomitant]
  2. YAZ [Suspect]
     Indication: ORAL CONTRACEPTION
     Dosage: UNK
     Dates: start: 20081104, end: 20090611

REACTIONS (10)
  - PAIN [None]
  - EMOTIONAL DISTRESS [None]
  - ANXIETY [None]
  - FATIGUE [None]
  - INJURY [None]
  - WEIGHT DECREASED [None]
  - PULMONARY EMBOLISM [None]
  - DEPRESSION [None]
  - PULMONARY INFARCTION [None]
  - CHEST PAIN [None]
